FAERS Safety Report 9730038 (Version 3)
Quarter: 2014Q2

REPORT INFORMATION
  Report Type: Spontaneous
  Country: JP (occurrence: JP)
  Receive Date: 20131204
  Receipt Date: 20140527
  Transmission Date: 20141212
  Serious: Yes (Hospitalization)
  Sender: FDA-Public Use
  Company Number: JP-ABBVIE-13P-087-1175190-00

PATIENT
  Age: 70 Year
  Sex: Male

DRUGS (2)
  1. LEUPLIN [Suspect]
     Indication: PROSTATE CANCER
     Route: 058
  2. BICALUTAMIDE [Concomitant]
     Indication: PRODUCT USED FOR UNKNOWN INDICATION

REACTIONS (1)
  - Meningioma [Recovered/Resolved]
